FAERS Safety Report 6938397-0 (Version None)
Quarter: 2010Q3

REPORT INFORMATION
  Report Type: 
  Country: None (occurrence: None)
  Receive Date: 20100824
  Receipt Date: 20100812
  Transmission Date: 20110219
  Serious: Yes (Hospitalization, Other)
  Sender: FDA-Public Use
  Company Number: US-PFIZER INC-2010053003

PATIENT
  Sex: Female

DRUGS (11)
  1. CHANTIX [Suspect]
     Indication: SMOKING CESSATION THERAPY
     Dosage: STARTER PACK
     Dates: start: 20080429
  2. CHANTIX [Suspect]
     Dosage: 1 MG, MAINTENANCE PACK
     Dates: end: 20080629
  3. OXYCODONE [Concomitant]
     Indication: PAIN
     Dosage: UNK
  4. HYDROCODONE [Concomitant]
     Indication: PAIN
     Dosage: UNK
     Dates: start: 20051021
  5. BUTALBITAL [Concomitant]
     Indication: PAIN
     Dosage: UNK
     Dates: start: 20051021, end: 20100201
  6. TRAZODONE [Concomitant]
     Indication: DEPRESSION
     Dosage: UNK
     Dates: end: 20081013
  7. LAMICTAL [Concomitant]
     Indication: BIPOLAR DISORDER
     Dosage: UNK
     Dates: end: 20081127
  8. FLUOXETINE [Concomitant]
     Indication: DEPRESSION
     Dosage: UNK
     Dates: end: 20081127
  9. ACETAMINOPHEN [Concomitant]
     Indication: PAIN
     Dosage: UNK
     Dates: start: 20080618, end: 20080622
  10. SPIRIVA [Concomitant]
     Indication: CHRONIC OBSTRUCTIVE PULMONARY DISEASE
     Dosage: UNK
     Dates: start: 20080429, end: 20080701
  11. ACTONEL [Concomitant]
     Indication: OSTEOPOROSIS
     Dosage: UNK
     Dates: start: 20080303, end: 20080701

REACTIONS (4)
  - CONCUSSION [None]
  - CONTUSION [None]
  - DEPRESSION [None]
  - LOSS OF CONSCIOUSNESS [None]
